FAERS Safety Report 24947929 (Version 2)
Quarter: 2025Q2

REPORT INFORMATION
  Report Type: Spontaneous
  Country: PT (occurrence: PT)
  Receive Date: 20250210
  Receipt Date: 20250529
  Transmission Date: 20250717
  Serious: Yes (Other)
  Sender: JOHNSON AND JOHNSON
  Company Number: PT-JNJFOC-20250200337

PATIENT

DRUGS (1)
  1. TALVEY [Suspect]
     Active Substance: TALQUETAMAB-TGVS
     Indication: Product used for unknown indication

REACTIONS (2)
  - Polycythaemia [Unknown]
  - Alopecia [Unknown]
